FAERS Safety Report 5465736-2 (Version None)
Quarter: 2007Q3

REPORT INFORMATION
  Report Type: 
  Country: None (occurrence: None)
  Receive Date: 20070919
  Receipt Date: 20070919
  Transmission Date: 20080115
  Serious: Yes (Hospitalization)
  Sender: FDA-Public Use
  Company Number: None

PATIENT
  Age: 44 Year
  Sex: Male

DRUGS (1)
  1. NASCOBAL [Suspect]
     Indication: VITAMIN B12 DEFICIENCY
     Dosage: INTRANASAL ADMINISTRATION WEEKLY
     Route: 045

REACTIONS (4)
  - CHILLS [None]
  - HEADACHE [None]
  - PAIN [None]
  - PYREXIA [None]
